FAERS Safety Report 4787941-0 (Version None)
Quarter: 2005Q3

REPORT INFORMATION
  Report Type: 
  Country: None (occurrence: None)
  Receive Date: 20050926
  Receipt Date: 20050623
  Transmission Date: 20060218
  Serious: Yes (Hospitalization)
  Sender: FDA-Public Use
  Company Number: 215592

PATIENT
  Age: 65 Year
  Sex: Male
  Weight: 66.7 kg

DRUGS (4)
  1. AVASTIN [Suspect]
     Indication: COLON CANCER
     Dosage: 325 MG, Q2W, INTRAVENOUS; SEE IMAGE
     Route: 042
     Dates: start: 20040510, end: 20040713
  2. AVASTIN [Suspect]
     Indication: COLON CANCER
     Dosage: 325 MG, Q2W, INTRAVENOUS; SEE IMAGE
     Route: 042
     Dates: start: 20040727, end: 20041025
  3. AVASTIN [Suspect]
     Indication: COLON CANCER
     Dosage: 325 MG, Q2W, INTRAVENOUS; SEE IMAGE
     Route: 042
     Dates: start: 20050110, end: 20050322
  4. AVASTIN [Suspect]
     Indication: COLON CANCER
     Dosage: 325 MG, Q2W, INTRAVENOUS; SEE IMAGE
     Route: 042
     Dates: start: 20050404

REACTIONS (1)
  - VENA CAVA THROMBOSIS [None]
